FAERS Safety Report 7208282-8 (Version None)
Quarter: 2011Q1

REPORT INFORMATION
  Report Type: 
  Country: None (occurrence: None)
  Receive Date: 20110104
  Receipt Date: 20101227
  Transmission Date: 20110831
  Serious: Yes (Other)
  Sender: FDA-Public Use
  Company Number: US-PFIZER INC-HQWYE745429JUN04

PATIENT
  Sex: Female
  Weight: 74.83 kg

DRUGS (9)
  1. PREMARIN [Suspect]
     Indication: HORMONE REPLACEMENT THERAPY
  2. PREMARIN [Suspect]
     Indication: OSTEOPOROSIS
     Dosage: 0.625 MG, UNK
     Dates: start: 19960101, end: 19970101
  3. PREMPRO [Suspect]
     Indication: HORMONE REPLACEMENT THERAPY
  4. PREMPRO [Suspect]
     Indication: PROPHYLAXIS
  5. PROVERA [Suspect]
     Indication: HORMONE REPLACEMENT THERAPY
     Dosage: 5 MG, UNK
     Dates: start: 19960101
  6. PREMPRO [Suspect]
     Indication: OSTEOPOROSIS
     Dosage: 0.625/2.5MG
     Dates: start: 19980101, end: 20020101
  7. PROVERA [Suspect]
     Indication: OSTEOPOROSIS
  8. PROVERA [Suspect]
     Indication: PROPHYLAXIS
  9. PREMARIN [Suspect]
     Indication: PROPHYLAXIS

REACTIONS (1)
  - BREAST CANCER FEMALE [None]
